FAERS Safety Report 4865112-7 (Version None)
Quarter: 2005Q4

REPORT INFORMATION
  Report Type: 
  Country: None (occurrence: None)
  Receive Date: 20051221
  Receipt Date: 20051221
  Transmission Date: 20060501
  Serious: Yes (Death)
  Sender: FDA-Public Use
  Company Number: None

PATIENT
  Sex: Female
  Weight: 62.5 kg

DRUGS (2)
  1. CYTOXAN [Suspect]
     Indication: MULTIPLE MYELOMA
     Dosage: SEE IMAGE
     Dates: start: 20050913
  2. NEUPOGEN [Suspect]
     Dosage: SEE IMAGE

REACTIONS (8)
  - CARDIO-RESPIRATORY ARREST [None]
  - DYSPNOEA [None]
  - FEELING COLD [None]
  - LIVEDO RETICULARIS [None]
  - MYOCARDIAL INFARCTION [None]
  - PULMONARY EMBOLISM [None]
  - RHEUMATOID ARTHRITIS [None]
  - SKIN DISCOLOURATION [None]
